FAERS Safety Report 23008381 (Version 3)
Quarter: 2024Q2

REPORT INFORMATION
  Report Type: Report from Study
  Country: US (occurrence: US)
  Receive Date: 20230929
  Receipt Date: 20240425
  Transmission Date: 20240716
  Serious: Yes (Other)
  Sender: FDA-Public Use
  Company Number: US-002147023-NVSC2023US207076

PATIENT
  Age: 61 Year
  Sex: Female

DRUGS (1)
  1. KESIMPTA [Suspect]
     Active Substance: OFATUMUMAB
     Indication: Relapsing multiple sclerosis
     Dosage: 20 MG, QMO
     Route: 058
     Dates: start: 20230806

REACTIONS (14)
  - Pulmonary congestion [Unknown]
  - Memory impairment [Unknown]
  - Ear infection [Unknown]
  - Upper respiratory tract infection [Unknown]
  - Nasopharyngitis [Unknown]
  - Cough [Unknown]
  - Central nervous system lesion [Unknown]
  - Temperature intolerance [Unknown]
  - Peripheral coldness [Unknown]
  - Overweight [Unknown]
  - Pain [Unknown]
  - Magnetic resonance imaging abnormal [Unknown]
  - Musculoskeletal disorder [Unknown]
  - Arthralgia [Unknown]

NARRATIVE: CASE EVENT DATE: 20230922
